FAERS Safety Report 6870558-1 (Version None)
Quarter: 2010Q3

REPORT INFORMATION
  Report Type: 
  Country: None (occurrence: None)
  Receive Date: 20100723
  Receipt Date: 20100712
  Transmission Date: 20110219
  Serious: Yes (Other)
  Sender: FDA-Public Use
  Company Number: US-ELI_LILLY_AND_COMPANY-US201007002502

PATIENT
  Sex: Female

DRUGS (10)
  1. EVISTA [Suspect]
     Indication: OSTEOPOROSIS
     Dosage: 60 MG, DAILY (1/D)
  2. TOPAMAX [Concomitant]
     Dosage: 200 MG, 2/D
  3. PLAVIX [Concomitant]
     Dosage: 75 MG, DAILY (1/D)
  4. AMITIZA [Concomitant]
     Dosage: 24 UG, 2/D
  5. RANITIDINE [Concomitant]
     Dosage: 150 MG, 2/D
  6. SYNTHROID [Concomitant]
     Dosage: 0.05 MG, DAILY (1/D)
  7. ASPIRIN [Concomitant]
     Dosage: UNK, DAILY (1/D)
  8. ZOCOR [Concomitant]
     Dosage: 80 MG, DAILY (1/D)
  9. AMITRIPTYLINE HYDROCHLORIDE [Concomitant]
     Dosage: 100 MG, DAILY (1/D)
  10. FIORINAL W/CODEINE [Concomitant]
     Indication: BREAKTHROUGH PAIN

REACTIONS (6)
  - BLISTER [None]
  - CONTUSION [None]
  - FALL [None]
  - INJURY [None]
  - LUNG NEOPLASM MALIGNANT [None]
  - SKIN CANCER [None]
